FAERS Safety Report 17073645 (Version 1)
Quarter: 2019Q4

REPORT INFORMATION
  Report Type: Spontaneous
  Country: US (occurrence: US)
  Receive Date: 20191126
  Receipt Date: 20191126
  Transmission Date: 20200122
  Serious: Yes (Life-Threatening, Other)
  Sender: FDA-Public Use
  Company Number: US-TEVA-2019-US-1143947

PATIENT
  Age: 34 Year
  Sex: Female

DRUGS (10)
  1. OMEPRAZOLE. [Concomitant]
     Active Substance: OMEPRAZOLE
  2. ATIVAN [Concomitant]
     Active Substance: LORAZEPAM
  3. ZOFRAN [Concomitant]
     Active Substance: ONDANSETRON HYDROCHLORIDE
  4. LEVOTHYROXINE. [Concomitant]
     Active Substance: LEVOTHYROXINE
  5. IPRATROPIUM [Concomitant]
     Active Substance: IPRATROPIUM
  6. NAPROXEN. [Concomitant]
     Active Substance: NAPROXEN
  7. FLUTICASONE NASAL SPRAY [Concomitant]
     Active Substance: FLUTICASONE
  8. FLUDROCORTISONE [Concomitant]
     Active Substance: FLUDROCORTISONE
  9. AJOVY [Suspect]
     Active Substance: FREMANEZUMAB-VFRM
     Indication: MIGRAINE
     Route: 065
     Dates: start: 20190627
  10. HUMALOG [Concomitant]
     Active Substance: INSULIN LISPRO

REACTIONS (7)
  - Weight decreased [Unknown]
  - Dysphagia [Unknown]
  - Oesophageal disorder [Unknown]
  - Oropharyngeal pain [Unknown]
  - Dysphonia [Recovering/Resolving]
  - Glossodynia [Unknown]
  - Headache [Not Recovered/Not Resolved]

NARRATIVE: CASE EVENT DATE: 201908
